FAERS Safety Report 25823061 (Version 1)
Quarter: 2025Q3

REPORT INFORMATION
  Report Type: Spontaneous
  Country: US (occurrence: US)
  Receive Date: 20250919
  Receipt Date: 20250919
  Transmission Date: 20251020
  Serious: No
  Sender: ROCHE
  Company Number: US-ROCHE-10000386342

PATIENT
  Sex: Female

DRUGS (1)
  1. XOLAIR [Suspect]
     Active Substance: OMALIZUMAB
     Indication: Urticaria
     Dosage: STRENGTH: 300 MG/2ML
     Route: 058
     Dates: start: 202411

REACTIONS (7)
  - Skin exfoliation [Unknown]
  - Hypothyroidism [Unknown]
  - Heart valve incompetence [Unknown]
  - Vitamin B12 decreased [Unknown]
  - Dizziness [Unknown]
  - Headache [Unknown]
  - Brain fog [Unknown]
